FAERS Safety Report 10430153 (Version 2)
Quarter: 2014Q3

REPORT INFORMATION
  Report Type: Spontaneous
  Country: US (occurrence: None)
  Receive Date: 20140902
  Receipt Date: 20140910
  Transmission Date: 20150326
  Serious: Yes (Death)
  Sender: FDA-Public Use
  Company Number: 2505540

PATIENT
  Age: 39 Year
  Sex: Male

DRUGS (14)
  1. LIDOCAINE HCL [Concomitant]
     Active Substance: LIDOCAINE HYDROCHLORIDE
  2. CEFAZOLIN [Concomitant]
     Active Substance: CEFAZOLIN
  3. ATROPINE SULFATE. [Concomitant]
     Active Substance: ATROPINE SULFATE
  4. AMIDARONE HCL [Concomitant]
  5. MIDAZOLAM HCL [Concomitant]
     Active Substance: MIDAZOLAM HYDROCHLORIDE
  6. PROPOFOL. [Concomitant]
     Active Substance: PROPOFOL
  7. HYDROMORPHONE HCL [Suspect]
     Active Substance: HYDROMORPHONE HYDROCHLORIDE
     Indication: PAIN IN EXTREMITY
     Route: 042
     Dates: start: 20120316
  8. FENTAYL CITRATE [Concomitant]
  9. DIPTHERIA TETANUS ACELLLAR PERTUSSIS) [Concomitant]
  10. NORMAL SALINE [Concomitant]
     Active Substance: SODIUM CHLORIDE
  11. CALCIUM CHLORIDE. [Concomitant]
     Active Substance: CALCIUM CHLORIDE
  12. EPINEPHRINE. [Concomitant]
     Active Substance: EPINEPHRINE
  13. VASOPRESSIN [Concomitant]
     Active Substance: VASOPRESSIN
  14. SODIUM BICARBONATE. [Concomitant]
     Active Substance: SODIUM BICARBONATE

REACTIONS (6)
  - Depressed level of consciousness [None]
  - Unresponsive to stimuli [None]
  - Cardiac arrest [None]
  - Accidental overdose [None]
  - Respiratory depression [None]
  - Fat embolism [None]

NARRATIVE: CASE EVENT DATE: 20120316
